FAERS Safety Report 5197120-3 (Version None)
Quarter: 2007Q1

REPORT INFORMATION
  Report Type: 
  Country: None (occurrence: None)
  Receive Date: 20070103
  Receipt Date: 20061228
  Transmission Date: 20070707
  Serious: Yes (Hospitalization)
  Sender: FDA-Public Use
  Company Number: US-GLAXOSMITHKLINE-A0621307A

PATIENT
  Age: 63 Year
  Sex: Female

DRUGS (12)
  1. PAXIL CR [Suspect]
     Indication: DEPRESSION
     Dosage: 37.5MG PER DAY
     Route: 048
  2. SEROQUEL [Concomitant]
  3. CELEXA [Concomitant]
  4. ASPIRIN [Concomitant]
  5. LIPITOR [Concomitant]
  6. OXAZEPAM [Concomitant]
  7. SYNTHROID [Concomitant]
  8. AMBIEN [Concomitant]
  9. PROTONIX [Concomitant]
  10. ATENOLOL [Concomitant]
  11. TRILEPTAL [Concomitant]
  12. UNKNOWN MEDICATION [Concomitant]

REACTIONS (10)
  - DIZZINESS [None]
  - GENERAL PHYSICAL HEALTH DETERIORATION [None]
  - HYPERHIDROSIS [None]
  - HYPONATRAEMIA [None]
  - IMPAIRED DRIVING ABILITY [None]
  - LOSS OF CONSCIOUSNESS [None]
  - SLEEP DISORDER [None]
  - SLEEP WALKING [None]
  - VOMITING [None]
  - WRONG TECHNIQUE IN DRUG USAGE PROCESS [None]
